FAERS Safety Report 14212145 (Version 1)
Quarter: 2017Q4

REPORT INFORMATION
  Report Type: Spontaneous
  Country: CA (occurrence: CA)
  Receive Date: 20171122
  Receipt Date: 20171122
  Transmission Date: 20180321
  Serious: Yes (Other)
  Sender: FDA-Public Use
  Company Number: CA-NAPPMUNDI-CAN-2017-0008025

PATIENT

DRUGS (11)
  1. HYDROMORPHONE HYDROCHLORIDE. [Suspect]
     Active Substance: HYDROMORPHONE HYDROCHLORIDE
     Indication: PAIN
     Dosage: UNK
     Route: 048
  2. TEGRETOL [Suspect]
     Active Substance: CARBAMAZEPINE
     Indication: PAIN
     Dosage: UNK
     Route: 065
  3. OXYCONTIN [Suspect]
     Active Substance: OXYCODONE HYDROCHLORIDE
     Indication: PAIN
     Dosage: UNK
     Route: 065
  4. TORADOL [Suspect]
     Active Substance: KETOROLAC TROMETHAMINE
     Indication: PAIN
     Dosage: UNK
     Route: 065
  5. CODEINE [Suspect]
     Active Substance: CODEINE
     Indication: PAIN
     Dosage: UNK
     Route: 065
  6. BOTULINUM TOXIN TYPE A [Suspect]
     Active Substance: BOTULINUM TOXIN TYPE A
     Indication: PAIN
     Dosage: UNK
     Route: 030
  7. CELEBREX [Suspect]
     Active Substance: CELECOXIB
     Indication: PAIN
     Dosage: UNK
     Route: 065
  8. CESAMET [Suspect]
     Active Substance: NABILONE
     Indication: PAIN
     Dosage: 1 DF, BID
     Route: 065
  9. CAFFEINE. [Suspect]
     Active Substance: CAFFEINE
     Indication: PAIN
     Dosage: 0.2 MG/M2, UNK
     Route: 065
  10. AMITRIPTYLINE [Suspect]
     Active Substance: AMITRIPTYLINE
     Indication: PAIN
     Dosage: UNK
     Route: 065
  11. FENTANYL. [Suspect]
     Active Substance: FENTANYL
     Indication: PAIN
     Dosage: 1 DF, Q1H
     Route: 062

REACTIONS (2)
  - Drug use disorder [Unknown]
  - Off label use [Unknown]
